FAERS Safety Report 7105557-8 (Version None)
Quarter: 2010Q4

REPORT INFORMATION
  Report Type: 
  Country: None (occurrence: None)
  Receive Date: 20101110
  Receipt Date: 20101026
  Transmission Date: 20110411
  Serious: Yes (Hospitalization)
  Sender: FDA-Public Use
  Company Number: 1000017154

PATIENT
  Age: 46 Year
  Sex: Female

DRUGS (7)
  1. CELEXA [Suspect]
     Dosage: 10 MG (10 MG, 1 IN 1 D)
  2. METAXALONE [Concomitant]
  3. BACTRIM (TRIMETHOPRIM, SULFAMATHOXAZOLE) [Concomitant]
  4. ZOLPIDEM CR (ZOLPIDEM) [Concomitant]
  5. INSULIN GLARGINE [Concomitant]
  6. INSULIN LISPRO [Concomitant]
  7. OLANZAPINE [Concomitant]

REACTIONS (11)
  - ABNORMAL BEHAVIOUR [None]
  - ALCOHOL USE [None]
  - BLOOD PRESSURE INCREASED [None]
  - CLONUS [None]
  - DELIRIUM [None]
  - DRUG INEFFECTIVE [None]
  - HYPERREFLEXIA [None]
  - JOINT RANGE OF MOTION DECREASED [None]
  - MUSCLE RIGIDITY [None]
  - TACHYCARDIA [None]
  - TREMOR [None]
